FAERS Safety Report 4841449-2 (Version None)
Quarter: 2005Q4

REPORT INFORMATION
  Report Type: 
  Country: None (occurrence: None)
  Receive Date: 20051130
  Receipt Date: 20040422
  Transmission Date: 20060501
  Serious: Yes (Disabling)
  Sender: FDA-Public Use
  Company Number: US-BOEHRINGER INGELHEIM PHARMACEUTICALS, INC.-2004-DE-02562GD

PATIENT
  Age: 66 Year
  Sex: Female

DRUGS (3)
  1. PRAMIPEXOLE [Suspect]
     Indication: PARKINSON'S DISEASE
  2. CARBIDOPA AND LEVODOPA [Suspect]
     Indication: PARKINSON'S DISEASE
     Dosage: 750 MG LEVODOPA
  3. FLUOXETINE [Concomitant]
     Indication: DEPRESSION

REACTIONS (1)
  - PATHOLOGICAL GAMBLING [None]
